FAERS Safety Report 18905860 (Version 1)
Quarter: 2021Q1

REPORT INFORMATION
  Report Type: Spontaneous
  Country: US (occurrence: US)
  Receive Date: 20210217
  Receipt Date: 20210217
  Transmission Date: 20210420
  Serious: Yes (Death, Other)
  Sender: FDA-Public Use
  Company Number: US-OTSUKA-2020_018034

PATIENT

DRUGS (13)
  1. BUSULFAN. [Suspect]
     Active Substance: BUSULFAN
     Indication: STEM CELL TRANSPLANT
  2. ACYCLOVIR. [Concomitant]
     Active Substance: ACYCLOVIR
     Indication: INFECTION PROPHYLAXIS
     Dosage: UNK
     Route: 065
  3. DECITABINE. [Suspect]
     Active Substance: DECITABINE
     Indication: MYELOID LEUKAEMIA
     Dosage: 20 MG/M2 QD, (TEN DAYS AS A SINGLE CYCLE)
     Route: 042
  4. LEVOFLOXACIN. [Concomitant]
     Active Substance: LEVOFLOXACIN
     Indication: NEUTROPENIA
     Dosage: UNK
     Route: 065
  5. DECITABINE. [Suspect]
     Active Substance: DECITABINE
     Indication: CHEMOTHERAPY
  6. FLUDARABINE [Suspect]
     Active Substance: FLUDARABINE PHOSPHATE
     Indication: STEM CELL TRANSPLANT
  7. G?CSF [Concomitant]
     Active Substance: GRANULOCYTE COLONY-STIMULATING FACTOR NOS
     Indication: INFECTION PROPHYLAXIS
     Dosage: UNK
     Route: 065
  8. BUSULFAN. [Suspect]
     Active Substance: BUSULFAN
     Indication: BONE MARROW CONDITIONING REGIMEN
     Dosage: UNK, QD (ON DAY ?5 TO ?2)
     Route: 042
  9. FLUDARABINE [Suspect]
     Active Substance: FLUDARABINE PHOSPHATE
     Indication: BONE MARROW CONDITIONING REGIMEN
     Dosage: 50 MG/M2, QD (30 MIN DAY ?5 TO ?2)
     Route: 042
  10. CYCLOPHOSPHAMIDE. [Suspect]
     Active Substance: CYCLOPHOSPHAMIDE
     Indication: PROPHYLAXIS AGAINST GRAFT VERSUS HOST DISEASE
     Dosage: 50 MG/KG, (ON DAYS + 3 AND + 4)
     Route: 042
  11. MYCOPHENOLATE MOFETIL. [Suspect]
     Active Substance: MYCOPHENOLATE MOFETIL
     Indication: PROPHYLAXIS AGAINST GRAFT VERSUS HOST DISEASE
     Dosage: 15 MG/KG, TID (ON DAYS + 5 ? + 35)
     Route: 048
  12. TRIMETHOPRIM SULFAMETHOXAZOLE [Concomitant]
     Active Substance: SULFAMETHOXAZOLE\TRIMETHOPRIM
     Indication: INFECTION PROPHYLAXIS
     Dosage: UNK
     Route: 065
  13. TACROLIMUS. [Suspect]
     Active Substance: TACROLIMUS
     Indication: PROPHYLAXIS AGAINST GRAFT VERSUS HOST DISEASE
     Dosage: 0.12 MG/KG, QD (GIVEN ON DAYS +5 ? +100)
     Route: 048

REACTIONS (2)
  - Neutropenia [Unknown]
  - Pneumonia [Fatal]
